FAERS Safety Report 6798384-2 (Version None)
Quarter: 2010Q2

REPORT INFORMATION
  Report Type: 
  Country: None (occurrence: None)
  Receive Date: 20100622
  Receipt Date: 20100608
  Transmission Date: 20101027
  Serious: Yes (Other)
  Sender: FDA-Public Use
  Company Number: 013517

PATIENT
  Age: 56 Year
  Sex: Male
  Weight: 73.2 kg

DRUGS (6)
  1. LACOSAMIDE [Suspect]
     Indication: COMPLEX PARTIAL SEIZURES
     Dosage: (350 MG, 50 MG AT 10:00 AM, 100 MG AT 300 PM, 100MG AT 7:00 PM AND 100 MG AT BEDTIME ORAL)
     Route: 048
     Dates: start: 20100123
  2. TOPAMAX [Concomitant]
  3. PHENOBARBITAL [Concomitant]
  4. MELOXICAM [Concomitant]
  5. NOVOLOG [Concomitant]
  6. ATIVAN [Concomitant]

REACTIONS (5)
  - BURNING SENSATION [None]
  - CONVULSION [None]
  - DYSARTHRIA [None]
  - DYSPNOEA [None]
  - HYPOVENTILATION [None]
